FAERS Safety Report 10210333 (Version 1)
Quarter: 2014Q2

REPORT INFORMATION
  Report Type: Spontaneous
  Country: US (occurrence: None)
  Receive Date: 20140529
  Receipt Date: 20140529
  Transmission Date: 20141212
  Serious: Yes (Hospitalization)
  Sender: FDA-Public Use
  Company Number: None

PATIENT
  Age: 66 Year
  Sex: Male
  Weight: 66.8 kg

DRUGS (16)
  1. AZACITIDINE [Suspect]
     Indication: NON-SMALL CELL LUNG CANCER
     Route: 048
     Dates: start: 20140422, end: 20140512
  2. ASPIRIN 81 MG [Concomitant]
  3. PERCOCET 325 MG-5MG [Concomitant]
  4. LIPITOR 20MG [Concomitant]
  5. GLYBURIDE 2.5MG [Concomitant]
  6. FUROSEMIDE 20MG [Concomitant]
  7. OXYCODONE [Concomitant]
  8. ALLEVE 220 [Concomitant]
  9. ZOFRAN 8MG [Concomitant]
  10. COMPAZINE 10MG [Concomitant]
  11. CC-486 300MG [Concomitant]
  12. SENNACOT S [Concomitant]
  13. XGEVA 120MG [Concomitant]
  14. TYLENOL 325MG [Concomitant]
  15. MIRALAX OTC [Concomitant]
  16. ZANTAC 150MG [Concomitant]

REACTIONS (6)
  - Febrile neutropenia [None]
  - Cough [None]
  - Fatigue [None]
  - Dyspnoea [None]
  - Cardiac arrest [None]
  - Apnoea [None]
